FAERS Safety Report 18105657 (Version 1)
Quarter: 2020Q3

REPORT INFORMATION
  Report Type: Spontaneous
  Country: NL (occurrence: NL)
  Receive Date: 20200803
  Receipt Date: 20200803
  Transmission Date: 20201103
  Serious: Yes (Death)
  Sender: FDA-Public Use
  Company Number: NL-HQ SPECIALTY-NL-2020INT000085

PATIENT

DRUGS (11)
  1. NORMAL SALINE [Concomitant]
     Active Substance: SODIUM CHLORIDE
     Indication: FLUID REPLACEMENT
     Dosage: 4 L, OVER 20 H, POST?HYDRATION
     Route: 065
  2. RADIOTHERAPY [Suspect]
     Active Substance: RADIATION THERAPY
     Indication: SQUAMOUS CELL CARCINOMA OF HEAD AND NECK
     Dosage: 70 GY IN 35 DAILY FRACTIONS OF 2 GY WEEKDAYS
     Route: 050
  3. POTASSIUM [Concomitant]
     Active Substance: POTASSIUM
     Indication: FLUID REPLACEMENT
     Dosage: 20 MMOL, OVER 2 H, PRE?HYDRATION
     Route: 065
  4. DEXAMETHASONE. [Concomitant]
     Active Substance: DEXAMETHASONE
     Indication: ANTIEMETIC SUPPORTIVE CARE
     Dosage: UNK
     Route: 065
  5. POTASSIUM [Concomitant]
     Active Substance: POTASSIUM
     Indication: FLUID REPLACEMENT
     Dosage: 80 MMOL, OVER 20 H, POST?HYDRATION
     Route: 065
  6. CISPLATIN. [Suspect]
     Active Substance: CISPLATIN
     Indication: SQUAMOUS CELL CARCINOMA OF HEAD AND NECK
     Dosage: 100 MG/M2 OVER 3H ON DAY 1, 22, AND 43 OF RT
     Route: 042
  7. RADIOTHERAPY [Suspect]
     Active Substance: RADIATION THERAPY
     Dosage: 54.25 GY IN 35 DAILY FRACTIONS 1.55 GY
     Route: 050
  8. NORMAL SALINE [Concomitant]
     Active Substance: SODIUM CHLORIDE
     Indication: FLUID REPLACEMENT
     Dosage: 1 L, OVER 2 H, PRE?HYDRATION
     Route: 065
  9. MAGNESIUM [Concomitant]
     Active Substance: MAGNESIUM
     Indication: FLUID REPLACEMENT
     Dosage: 2 G, OVER 2 H, PRE?HYDRATION
     Route: 065
  10. APREPITANT. [Concomitant]
     Active Substance: APREPITANT
     Indication: PRODUCT USED FOR UNKNOWN INDICATION
     Dosage: UNK
     Route: 065
  11. MAGNESIUM [Concomitant]
     Active Substance: MAGNESIUM
     Indication: FLUID REPLACEMENT
     Dosage: 8 G, OVER 20 H, POST?HYDRATOIN
     Route: 065

REACTIONS (1)
  - Sudden death [Fatal]
